FAERS Safety Report 5917431-0 (Version None)
Quarter: 2008Q4

REPORT INFORMATION
  Report Type: 
  Country: None (occurrence: None)
  Receive Date: 20081014
  Receipt Date: 20081009
  Transmission Date: 20090506
  Serious: Yes (Hospitalization)
  Sender: FDA-Public Use
  Company Number: B0541360A

PATIENT
  Sex: Female

DRUGS (5)
  1. SERETIDE [Suspect]
     Indication: DRUG USE FOR UNKNOWN INDICATION
     Route: 065
  2. ZOLPIDEM [Concomitant]
     Route: 065
  3. PERINDOPRIL [Concomitant]
     Route: 065
  4. MICARDIS [Concomitant]
     Route: 065
  5. CARBASALAAT CALCIUM [Concomitant]

REACTIONS (5)
  - CHEST PAIN [None]
  - DYSPNOEA [None]
  - EXPIRED DRUG ADMINISTERED [None]
  - MALAISE [None]
  - TACHYCARDIA [None]
